FAERS Safety Report 8988610 (Version 2)
Quarter: 2013Q1

REPORT INFORMATION
  Report Type: Spontaneous
  Country: US (occurrence: None)
  Receive Date: 20121218
  Receipt Date: 20130220
  Transmission Date: 20140127
  Serious: Yes (Hospitalization, Other)
  Sender: FDA-Public Use
  Company Number: AUR-APL-2012-05318

PATIENT
  Age: 72 Year
  Sex: Female
  Weight: 121 kg

DRUGS (12)
  1. METFORMIN [Suspect]
     Indication: DIABETES MELLITUS
     Dates: start: 2005
  2. LISINOPRIL-HYDROCHLOROTHIAZIDE [Suspect]
     Dosage: IN NMORNING
  3. LYRICA [Suspect]
     Indication: NEUROPATHY PERIPHERAL
     Dosage: (150 MG, 2 IN D)
     Dates: start: 2006
  4. LYRICA [Suspect]
     Indication: PAIN IN EXTREMITY
     Dosage: (150 MG, 2 IN D)
     Dates: start: 2006
  5. DILTIAZEM [Suspect]
     Indication: BLOOD PRESSURE ABNORMAL
     Dosage: 1 D
     Dates: start: 2006
  6. TOPROL XL [Suspect]
     Indication: BLOOD PRESSURE ABNORMAL
     Dosage: ED TIME
  7. PREDNISONE(PREDNISONE) [Concomitant]
  8. :AMOXICILLIN/ CLAVULANATE POTASSIUM(SPEKTRAMOX /02043401/)? [Concomitant]
  9. CRESTOR(ROSUVASTATIN) [Concomitant]
  10. GLIMEPIRIDE(GLIMEPIRIDE) [Concomitant]
  11. LEVOTHYROXINE(LEVOTHYROXINE) [Concomitant]
  12. NEXIUM(ESOMEPRAZOLE [Concomitant]

REACTIONS (3)
  - Pain in extremity [None]
  - Renal disorder [None]
  - Blood disorder [None]
